FAERS Safety Report 8614958-8 (Version None)
Quarter: 2012Q3

REPORT INFORMATION
  Report Type: 
  Country: None (occurrence: None)
  Receive Date: 20120823
  Receipt Date: 20120813
  Transmission Date: 20120928
  Serious: Yes (Hospitalization, Disabling, Other)
  Sender: FDA-Public Use
  Company Number: US-009507513-1203USA03329

PATIENT

DRUGS (8)
  1. FOSAMAX [Suspect]
     Dosage: 10 MG, UNK
     Route: 048
     Dates: start: 20000518, end: 20010409
  2. FOSAMAX [Suspect]
     Indication: OSTEOPOROSIS
     Dosage: 70 MG, UNK
     Route: 048
     Dates: start: 20080411, end: 20080702
  3. FOSAMAX [Suspect]
     Dosage: 70 MG, QD
     Route: 048
  4. ALENDRONATE SODIUM [Suspect]
     Dosage: 70 MG, UNK
     Route: 048
     Dates: start: 20080914, end: 20090816
  5. FOSAMAX [Suspect]
     Indication: BONE LOSS
     Dosage: 70 MG, QW
     Route: 048
     Dates: start: 19960601, end: 20080101
  6. PREMARIN [Concomitant]
     Indication: HORMONE REPLACEMENT THERAPY
     Dosage: 0.3 MG, UNK
  7. FOSAMAX [Suspect]
     Indication: OSTEOPENIA
  8. ALENDRONATE SODIUM [Suspect]
     Dosage: 70 MG, UNK
     Route: 048
     Dates: start: 20091115, end: 20110301

REACTIONS (61)
  - EXPLORATIVE LAPAROTOMY [None]
  - INTERVERTEBRAL DISC DEGENERATION [None]
  - EXOSTOSIS [None]
  - OSTEOPENIA [None]
  - PEPTIC ULCER [None]
  - DRY MOUTH [None]
  - INTERVERTEBRAL DISC INJURY [None]
  - CATARACT [None]
  - MENISCUS LESION [None]
  - NERVE COMPRESSION [None]
  - FATIGUE [None]
  - SIGMOIDECTOMY [None]
  - TOOTH DISORDER [None]
  - DIVERTICULITIS [None]
  - GLAUCOMA [None]
  - DYSPNOEA [None]
  - ADVERSE EVENT [None]
  - MUSCLE SPASMS [None]
  - NAUSEA [None]
  - SMALL INTESTINAL OBSTRUCTION [None]
  - FRACTURE [None]
  - BONE DENSITY DECREASED [None]
  - DIVERTICULUM [None]
  - OVERDOSE [None]
  - STRESS URINARY INCONTINENCE [None]
  - LUNG DISORDER [None]
  - PNEUMONIA [None]
  - OROPHARYNGEAL PAIN [None]
  - POLLAKIURIA [None]
  - STRESS FRACTURE [None]
  - FALLOPIAN TUBE DISORDER [None]
  - BASAL CELL CARCINOMA [None]
  - GASTROOESOPHAGEAL REFLUX DISEASE [None]
  - OSTEOSCLEROSIS [None]
  - BARRETT'S OESOPHAGUS [None]
  - VAGINAL PROLAPSE [None]
  - JOINT DISLOCATION [None]
  - ASTHENIA [None]
  - FOOT FRACTURE [None]
  - HIATUS HERNIA [None]
  - HYPERCHOLESTEROLAEMIA [None]
  - PAIN [None]
  - INTERVERTEBRAL DISC DISORDER [None]
  - CELLULITIS [None]
  - FOOT DEFORMITY [None]
  - OSTEOARTHRITIS [None]
  - HEADACHE [None]
  - ARTHRITIS [None]
  - POST LAMINECTOMY SYNDROME [None]
  - FEMUR FRACTURE [None]
  - BURSITIS [None]
  - RADICULOPATHY [None]
  - ACQUIRED OESOPHAGEAL WEB [None]
  - ARTHROPATHY [None]
  - TINNITUS [None]
  - OSTEOPOROSIS [None]
  - HYPERTENSION [None]
  - APPENDIX DISORDER [None]
  - WEIGHT INCREASED [None]
  - BALANCE DISORDER [None]
  - SLEEP DISORDER [None]
